FAERS Safety Report 9700824 (Version 1)
Quarter: 2013Q4

REPORT INFORMATION
  Report Type: Spontaneous
  Country: US (occurrence: US)
  Receive Date: 20131121
  Receipt Date: 20131121
  Transmission Date: 20140711
  Serious: Yes (Other)
  Sender: FDA-Public Use
  Company Number: US-SHIRE-ALL1-2013-07956

PATIENT
  Sex: Male

DRUGS (1)
  1. VYVANSE [Suspect]
     Indication: PRODUCT USED FOR UNKNOWN INDICATION
     Dosage: 50 MG, UNKNOWN
     Route: 045

REACTIONS (6)
  - Cognitive disorder [Unknown]
  - Drug abuse [Unknown]
  - Epistaxis [Unknown]
  - Lack of spontaneous speech [Unknown]
  - Drug diversion [Unknown]
  - Vomiting [Unknown]
